FAERS Safety Report 18331070 (Version 6)
Quarter: 2024Q1

REPORT INFORMATION
  Report Type: Report from Study
  Country: US (occurrence: US)
  Receive Date: 20200930
  Receipt Date: 20240104
  Transmission Date: 20240410
  Serious: Yes (Other)
  Sender: FDA-Public Use
  Company Number: US-VERTEX PHARMACEUTICALS-2019-006904

PATIENT
  Sex: Female

DRUGS (9)
  1. ORKAMBI [Suspect]
     Active Substance: IVACAFTOR\LUMACAFTOR
     Indication: Cystic fibrosis
     Dosage: 100MG/125MG GRANULES
     Route: 048
     Dates: start: 20190222, end: 20190614
  2. ORKAMBI [Suspect]
     Active Substance: IVACAFTOR\LUMACAFTOR
     Dosage: REDUCED DOSE (EVERY MORNING AND EVERY OTHER NIGHT)
     Route: 048
     Dates: start: 20190807
  3. ORKAMBI [Suspect]
     Active Substance: IVACAFTOR\LUMACAFTOR
     Dosage: BACK UP TO FULL DOSE
     Route: 048
  4. ORKAMBI [Suspect]
     Active Substance: IVACAFTOR\LUMACAFTOR
     Dosage: BACK TO 75% DOSE (EVERY MORNING, EVERY OTHER NIGHT)
     Route: 048
     Dates: end: 2020
  5. ORKAMBI [Suspect]
     Active Substance: IVACAFTOR\LUMACAFTOR
     Dosage: FULL DOSE
     Route: 048
     Dates: start: 202010, end: 2020
  6. ORKAMBI [Suspect]
     Active Substance: IVACAFTOR\LUMACAFTOR
     Dosage: BACK TO 75% DOSE (EVERY MORNING, EVERY OTHER NIGHT)
     Route: 048
     Dates: start: 202012
  7. ORKAMBI [Suspect]
     Active Substance: IVACAFTOR\LUMACAFTOR
     Dosage: REDUCED DOSE (EVERY MORNING AND EVERY OTHER NIGHT)
     Route: 048
     Dates: start: 20210514
  8. ORKAMBI [Suspect]
     Active Substance: IVACAFTOR\LUMACAFTOR
     Dosage: 150 MG/188 MG (ONE PACKET GRANULES IN THE MORNING DAILY AND 1 PACKET GRANULES IN EVENING EVERY OTHER
     Route: 048
     Dates: start: 202103, end: 202105
  9. ORKAMBI [Suspect]
     Active Substance: IVACAFTOR\LUMACAFTOR
     Dosage: 100MG/125 MG (REDUCED DOSE)
     Route: 048
     Dates: start: 202105

REACTIONS (10)
  - Hepatic failure [Recovering/Resolving]
  - Mood altered [Recovered/Resolved]
  - Crying [Not Recovered/Not Resolved]
  - Abnormal behaviour [Not Recovered/Not Resolved]
  - Anger [Unknown]
  - Impatience [Unknown]
  - Onychophagia [Unknown]
  - Depressed mood [Recovering/Resolving]
  - Feeling abnormal [Recovering/Resolving]
  - Anxiety [Unknown]

NARRATIVE: CASE EVENT DATE: 20190101
